FAERS Safety Report 10186862 (Version 1)
Quarter: 2014Q2

REPORT INFORMATION
  Report Type: Spontaneous
  Country: US (occurrence: US)
  Receive Date: 20140522
  Receipt Date: 20140522
  Transmission Date: 20141212
  Serious: No
  Sender: FDA-Public Use
  Company Number: US-US-EMD SERONO, INC.-7292083

PATIENT
  Sex: Female

DRUGS (7)
  1. REBIF [Suspect]
     Indication: PRODUCT USED FOR UNKNOWN INDICATION
     Dates: start: 201402
  2. LOSARTAN [Concomitant]
     Indication: PRODUCT USED FOR UNKNOWN INDICATION
  3. LORTAB                             /00607101/ [Concomitant]
     Indication: PRODUCT USED FOR UNKNOWN INDICATION
  4. ZOLOFT                             /01011401/ [Concomitant]
     Indication: PRODUCT USED FOR UNKNOWN INDICATION
  5. BACLOFEN [Concomitant]
     Indication: PRODUCT USED FOR UNKNOWN INDICATION
  6. GABAPENTIN [Concomitant]
     Indication: PRODUCT USED FOR UNKNOWN INDICATION
  7. METHYLPHENIDATE [Concomitant]
     Indication: PRODUCT USED FOR UNKNOWN INDICATION

REACTIONS (6)
  - Crying [Unknown]
  - Headache [Unknown]
  - Pain [Unknown]
  - Pyrexia [Unknown]
  - Chills [Unknown]
  - Injection site reaction [Unknown]
